FAERS Safety Report 24075739 (Version 1)
Quarter: 2024Q3

REPORT INFORMATION
  Report Type: Spontaneous
  Country: US (occurrence: US)
  Receive Date: 20240710
  Receipt Date: 20240710
  Transmission Date: 20241017
  Serious: Yes (Hospitalization)
  Sender: EISAI
  Company Number: US-Eisai-EC-2024-169484

PATIENT
  Age: 67 Year
  Sex: Male

DRUGS (1)
  1. LEQEMBI [Suspect]
     Active Substance: LECANEMAB-IRMB
     Indication: Product used for unknown indication
     Dosage: 100MG/ML
     Route: 042
     Dates: start: 20240516, end: 20240613

REACTIONS (4)
  - Asthenia [Recovered/Resolved]
  - Confusional state [Recovered/Resolved]
  - Disorientation [Recovering/Resolving]
  - Gait inability [Recovering/Resolving]

NARRATIVE: CASE EVENT DATE: 20240516
